FAERS Safety Report 16446435 (Version 1)
Quarter: 2019Q2

REPORT INFORMATION
  Report Type: Spontaneous
  Country: US (occurrence: US)
  Receive Date: 20190618
  Receipt Date: 20190618
  Transmission Date: 20190711
  Serious: Yes (Other)
  Sender: FDA-Public Use
  Company Number: US-BAUSCH-BL-2019-016979

PATIENT
  Age: 61 Year
  Sex: Male
  Weight: 81.72 kg

DRUGS (9)
  1. APRISO [Suspect]
     Active Substance: MESALAMINE
     Dosage: 4 CAPSULES OR 5 CAPSULES PER DAY
     Route: 065
  2. LOVASTATIN. [Concomitant]
     Active Substance: LOVASTATIN
     Indication: PRODUCT USED FOR UNKNOWN INDICATION
  3. OMEPRAZOLE. [Concomitant]
     Active Substance: OMEPRAZOLE
     Indication: PRODUCT USED FOR UNKNOWN INDICATION
  4. AMLODIPINE [Concomitant]
     Active Substance: AMLODIPINE BESYLATE
     Indication: PRODUCT USED FOR UNKNOWN INDICATION
  5. APRISO [Suspect]
     Active Substance: MESALAMINE
     Route: 065
  6. APRISO [Suspect]
     Active Substance: MESALAMINE
     Indication: COLITIS ULCERATIVE
     Dosage: ABOUT 2-3 YEARS AGO; 1.5 GRAMS PER DAY
     Route: 065
  7. LISINOPRIL. [Concomitant]
     Active Substance: LISINOPRIL
     Indication: PRODUCT USED FOR UNKNOWN INDICATION
  8. LORATADINE. [Concomitant]
     Active Substance: LORATADINE
     Indication: PRODUCT USED FOR UNKNOWN INDICATION
  9. RANITIDINE. [Concomitant]
     Active Substance: RANITIDINE
     Indication: PRODUCT USED FOR UNKNOWN INDICATION

REACTIONS (6)
  - Extra dose administered [Unknown]
  - Therapy cessation [Unknown]
  - Colitis ulcerative [Unknown]
  - Condition aggravated [Unknown]
  - Anxiety [Unknown]
  - Therapeutic product effect incomplete [Unknown]
